FAERS Safety Report 6107531-7 (Version None)
Quarter: 2009Q1

REPORT INFORMATION
  Report Type: 
  Country: None (occurrence: None)
  Receive Date: 20090309
  Receipt Date: 20090227
  Transmission Date: 20090719
  Serious: Yes (Hospitalization)
  Sender: FDA-Public Use
  Company Number: US-ABBOTT-09P-163-0559595-00

PATIENT
  Sex: Female
  Weight: 50.848 kg

DRUGS (13)
  1. HUMIRA [Suspect]
     Indication: CROHN'S DISEASE
     Route: 058
     Dates: start: 20080601, end: 20090101
  2. HUMIRA [Suspect]
     Route: 058
     Dates: start: 20090101, end: 20090227
  3. PENTASA [Concomitant]
     Indication: DRUG USE FOR UNKNOWN INDICATION
     Route: 048
  4. ACTONEL [Concomitant]
     Indication: CROHN'S DISEASE
     Route: 048
  5. XIFAXAN [Concomitant]
     Indication: CROHN'S DISEASE
     Dosage: BID
     Route: 048
  6. XIFAXAN [Concomitant]
     Indication: PROPHYLAXIS
  7. CIPROFLOXACIN HCL [Concomitant]
     Indication: CROHN'S DISEASE
     Dosage: 250 BID
     Route: 048
  8. CIPROFLOXACIN HCL [Concomitant]
     Indication: PROPHYLAXIS
  9. ATENOLOL [Concomitant]
     Indication: HYPERTENSION
     Route: 048
  10. PREVACID [Concomitant]
     Indication: GASTROOESOPHAGEAL REFLUX DISEASE
     Dosage: QD
     Route: 048
  11. PERCOCET [Concomitant]
     Indication: CROHN'S DISEASE
     Dosage: 5-325MG
     Route: 048
  12. PERCOCET [Concomitant]
     Indication: PAIN
  13. ALBUTEROL [Concomitant]
     Indication: ASTHMA
     Route: 055

REACTIONS (5)
  - CELLULITIS [None]
  - CROHN'S DISEASE [None]
  - MYOSITIS [None]
  - OEDEMA PERIPHERAL [None]
  - PAIN IN EXTREMITY [None]
